FAERS Safety Report 18198882 (Version 1)
Quarter: 2020Q3

REPORT INFORMATION
  Report Type: Spontaneous
  Country: JP (occurrence: JP)
  Receive Date: 20200826
  Receipt Date: 20200826
  Transmission Date: 20201103
  Serious: Yes (Hospitalization)
  Sender: FDA-Public Use
  Company Number: JP-ASTRAZENECA-2020SE99864

PATIENT
  Sex: Female

DRUGS (1)
  1. LYNPARZA [Suspect]
     Active Substance: OLAPARIB
     Indication: OVARIAN CANCER
     Dosage: DOSE UNKNOWN
     Route: 048
     Dates: start: 2020, end: 2020

REACTIONS (3)
  - Respiratory tract infection [Unknown]
  - Bronchitis [Unknown]
  - Upper respiratory tract inflammation [Unknown]

NARRATIVE: CASE EVENT DATE: 20200805
